FAERS Safety Report 18932930 (Version 1)
Quarter: 2021Q1

REPORT INFORMATION
  Report Type: Report from Study
  Country: US (occurrence: US)
  Receive Date: 20210224
  Receipt Date: 20210224
  Transmission Date: 20210420
  Serious: Yes (Hospitalization, Other)
  Sender: FDA-Public Use
  Company Number: US-SUN PHARMACEUTICAL INDUSTRIES LTD-2021R1-281206

PATIENT
  Sex: Female

DRUGS (2)
  1. OXYCODONE [Suspect]
     Active Substance: OXYCODONE
     Indication: POSTOPERATIVE CARE
     Dosage: UNK
     Route: 065
  2. OXYCODONE/ACETAMINOPHEN [Suspect]
     Active Substance: ACETAMINOPHEN\OXYCODONE HYDROCHLORIDE
     Indication: POSTOPERATIVE CARE
     Dosage: UNK
     Route: 065

REACTIONS (6)
  - Hypoxia [Unknown]
  - Dehydration [Unknown]
  - Lethargy [Unknown]
  - Ischaemic hepatitis [Unknown]
  - Hypovolaemia [Unknown]
  - Renal tubular necrosis [Unknown]
